FAERS Safety Report 5457032-4 (Version None)
Quarter: 2007Q3

REPORT INFORMATION
  Report Type: 
  Country: None (occurrence: None)
  Receive Date: 20070918
  Receipt Date: 20061220
  Transmission Date: 20080115
  Serious: No
  Sender: FDA-Public Use
  Company Number: US-ASTRAZENECA-2006UW28327

PATIENT

DRUGS (2)
  1. SEROQUEL [Suspect]
  2. EFFEXOR XR [Concomitant]
     Dates: start: 20050501

REACTIONS (10)
  - ATTENTION DEFICIT/HYPERACTIVITY DISORDER [None]
  - CLUMSINESS [None]
  - CONSTIPATION [None]
  - DIZZINESS [None]
  - DRY MOUTH [None]
  - LOGORRHOEA [None]
  - MOOD SWINGS [None]
  - ORTHOSTATIC HYPOTENSION [None]
  - PHARYNGITIS [None]
  - WEIGHT INCREASED [None]
